FAERS Safety Report 8757076 (Version 1)
Quarter: 2012Q4

REPORT INFORMATION
  Report Type: 
  Country: DE (occurrence: DE)
  Receive Date: 20120828
  Receipt Date: 20120828
  Transmission Date: 20130627
  Serious: Yes (Disabling)
  Sender: FDA-Public Use
  Company Number: DE-PFIZER INC-2012203774

PATIENT
  Age: 70 Year
  Sex: Male

DRUGS (7)
  1. DELIX [Suspect]
     Indication: HYPERTENSION
     Dosage: 2.5 mg, 1x/day, in the morning
     Route: 048
     Dates: start: 20120710, end: 20120810
  2. HYDROCHLOROTHIAZIDE [Concomitant]
     Dosage: UNK
  3. TAMSULOSIN [Concomitant]
     Dosage: UNK
  4. ACETYLSALICYLIC ACID [Concomitant]
     Dosage: UNK
  5. AEQUAMEN [Concomitant]
     Dosage: UNK
  6. FLUCLOX [Concomitant]
     Dosage: Unk
  7. EREMFAT [Concomitant]
     Dosage: Unk

REACTIONS (3)
  - Dysgeusia [Not Recovered/Not Resolved]
  - Ageusia [Not Recovered/Not Resolved]
  - Hyposmia [Not Recovered/Not Resolved]
